FAERS Safety Report 7239500-8 (Version None)
Quarter: 2011Q1

REPORT INFORMATION
  Report Type: 
  Country: None (occurrence: None)
  Receive Date: 20110121
  Receipt Date: 20110113
  Transmission Date: 20110831
  Serious: Yes (Other)
  Sender: FDA-Public Use
  Company Number: US-B.I. PHARMACEUTICALS,INC./RIDGEFIELD-2011-BP-01213BP

PATIENT
  Sex: Female

DRUGS (8)
  1. MAGNESIUM [Concomitant]
     Indication: ATRIAL FIBRILLATION
  2. MAGNESIUM [Concomitant]
     Indication: CARDIAC DISORDER
  3. DIZAREL [Concomitant]
     Indication: HYPERTENSION
  4. AMIODARONE HCL [Concomitant]
     Indication: CARDIAC DISORDER
  5. PRADAXA [Suspect]
     Indication: ATRIAL FIBRILLATION
     Dosage: 300 MG
     Route: 048
     Dates: start: 20101223, end: 20110101
  6. AMIODARONE HCL [Concomitant]
     Indication: ATRIAL FIBRILLATION
  7. BYSTOLIC [Concomitant]
     Indication: ATRIAL FIBRILLATION
  8. BYSTOLIC [Concomitant]
     Indication: CARDIAC DISORDER

REACTIONS (8)
  - DYSPNOEA [None]
  - PRURITUS [None]
  - PHARYNGEAL OEDEMA [None]
  - GENERALISED OEDEMA [None]
  - URTICARIA [None]
  - HYPERSENSITIVITY [None]
  - EYE SWELLING [None]
  - OXYGEN SATURATION DECREASED [None]
